FAERS Safety Report 17455719 (Version 1)
Quarter: 2020Q1

REPORT INFORMATION
  Report Type: Spontaneous
  Country: US (occurrence: US)
  Receive Date: 20200225
  Receipt Date: 20200225
  Transmission Date: 20200409
  Serious: Yes (Hospitalization, Other)
  Sender: FDA-Public Use
  Company Number: None

PATIENT
  Age: 82 Year
  Sex: Male
  Weight: 94.9 kg

DRUGS (1)
  1. ZYTIGA [Suspect]
     Active Substance: ABIRATERONE ACETATE
     Dates: start: 20191218

REACTIONS (3)
  - Hypokalaemia [None]
  - Pseudoaldosteronism [None]
  - Toxic encephalopathy [None]

NARRATIVE: CASE EVENT DATE: 20200205
